FAERS Safety Report 7668141-3 (Version None)
Quarter: 2011Q3

REPORT INFORMATION
  Report Type: 
  Country: None (occurrence: None)
  Receive Date: 20110808
  Receipt Date: 20080804
  Transmission Date: 20111222
  Serious: Yes (Other)
  Sender: FDA-Public Use
  Company Number: US-BAYER-200834531NA

PATIENT
  Age: 49 Year
  Sex: Male
  Weight: 114.7 kg

DRUGS (27)
  1. MAGNEVIST [Suspect]
     Indication: NUCLEAR MAGNETIC RESONANCE IMAGING
     Dosage: UNK, ONCE
     Dates: start: 20060823, end: 20060823
  2. LOPRESSOR [Concomitant]
  3. MEVACOR [Concomitant]
  4. TAMSULOSIN HCL [Concomitant]
  5. MAGNEVIST [Suspect]
     Dosage: UNK, ONCE
     Dates: start: 20061119, end: 20061119
  6. ACETYLSALICYLIC ACID SRT [Concomitant]
  7. LIPITOR [Concomitant]
  8. ARANESP [Concomitant]
  9. CARDIZEM CD [Concomitant]
  10. ISORDIL [Concomitant]
  11. ALDACTONE [Concomitant]
  12. NORVASC [Concomitant]
  13. COZAAR [Concomitant]
  14. LASIX [Concomitant]
  15. CLONIDINE [Concomitant]
  16. OXYCONTIN [Concomitant]
  17. MAGNEVIST [Suspect]
     Indication: ANGIOGRAM
     Dosage: UNK UNK, ONCE
     Dates: start: 20060821, end: 20060821
  18. GADOLINIUM IN UNSPECIFIED DRUG [Suspect]
     Dosage: UNK
     Dates: start: 20060822
  19. HYDRALAZINE HCL [Concomitant]
  20. ZYVOX [Concomitant]
  21. GADOLINIUM IN UNSPECIFIED DRUG [Suspect]
     Indication: ANGIOGRAM
     Dosage: UNK UNK, ONCE
     Dates: start: 20060826, end: 20060826
  22. ADALAT CC [Concomitant]
  23. ERTAPENEM [Concomitant]
  24. TEMAZEPAM [Concomitant]
  25. LISINOPRIL [Concomitant]
  26. PROCRIT [Concomitant]
  27. APRESOLINE [Concomitant]

REACTIONS (9)
  - MOBILITY DECREASED [None]
  - NEPHROGENIC SYSTEMIC FIBROSIS [None]
  - FIBROSIS [None]
  - SKIN FIBROSIS [None]
  - INJURY [None]
  - GENERAL PHYSICAL HEALTH DETERIORATION [None]
  - ANXIETY [None]
  - EMOTIONAL DISTRESS [None]
  - PAIN [None]
